FAERS Safety Report 4356198-7 (Version None)
Quarter: 2004Q2

REPORT INFORMATION
  Report Type: 
  Country: None (occurrence: None)
  Receive Date: 20040511
  Receipt Date: 20040426
  Transmission Date: 20050107
  Serious: No
  Sender: FDA-Public Use
  Company Number: 2004UW08381

PATIENT

DRUGS (1)
  1. XYLOCAINE [Suspect]
     Indication: CATARACT OPERATION
     Dosage: 20 MG DAILY

REACTIONS (3)
  - ANAESTHETIC COMPLICATION [None]
  - ENDOPHTHALMITIS [None]
  - PROCEDURAL COMPLICATION [None]
